FAERS Safety Report 4693282-2 (Version None)
Quarter: 2005Q2

REPORT INFORMATION
  Report Type: 
  Country: None (occurrence: None)
  Receive Date: 20050617
  Receipt Date: 20050615
  Transmission Date: 20051028
  Serious: Yes (Hospitalization)
  Sender: FDA-Public Use
  Company Number: US-GLAXOSMITHKLINE-A0562784A

PATIENT
  Sex: Female

DRUGS (6)
  1. COREG [Suspect]
     Indication: MEDICATION ERROR
     Dosage: 25MG SINGLE DOSE
     Route: 048
     Dates: start: 20050612, end: 20050612
  2. ALDACTONE [Suspect]
     Indication: MEDICATION ERROR
     Dates: start: 20050612, end: 20050612
  3. VASOTEC [Suspect]
     Indication: MEDICATION ERROR
     Dates: start: 20050612, end: 20050612
  4. NEURONTIN [Suspect]
     Indication: MEDICATION ERROR
     Dates: start: 20050612, end: 20050612
  5. TOPROL-XL [Concomitant]
  6. INSULIN [Concomitant]

REACTIONS (7)
  - BLOOD PRESSURE INCREASED [None]
  - DIZZINESS [None]
  - HEADACHE [None]
  - HYPOTENSION [None]
  - MEDICATION ERROR [None]
  - SWELLING [None]
  - VISION BLURRED [None]
